FAERS Safety Report 8926415 (Version 2)
Quarter: 2012Q4

REPORT INFORMATION
  Report Type: 
  Country: FR (occurrence: FR)
  Receive Date: 20121126
  Receipt Date: 20121231
  Transmission Date: 20130627
  Serious: Yes (Other)
  Sender: FDA-Public Use
  Company Number: FR-BAYER-2012-120259

PATIENT
  Age: 70 Year
  Sex: Male
  Weight: 74 kg

DRUGS (2)
  1. GADOVIST [Suspect]
     Indication: MRI BRAIN
     Dosage: 7.5 ml, ONCE
     Route: 042
     Dates: start: 20121115, end: 20121115
  2. CHLORHEXIDINE [Concomitant]
     Indication: SKIN DISINFECTION
     Dosage: UNK
     Route: 003
     Dates: start: 20121115

REACTIONS (4)
  - Dysgeusia [Recovered/Resolved]
  - Pain in jaw [Recovered/Resolved]
  - Angina pectoris [Recovered/Resolved]
  - Urticaria [Recovered/Resolved]
